FAERS Safety Report 5842139-X (Version None)
Quarter: 2008Q3

REPORT INFORMATION
  Report Type: 
  Country: None (occurrence: None)
  Receive Date: 20080812
  Receipt Date: 20080722
  Transmission Date: 20090109
  Serious: Yes (Other)
  Sender: FDA-Public Use
  Company Number: DE-JNJFOC-20080705319

PATIENT
  Sex: Female

DRUGS (1)
  1. SIROS [Suspect]
     Indication: TORULOPSIS INFECTION
     Dosage: TWO TABLETS IN THE MORNING AND TWO TABLETS IN THE EVENING
     Route: 048

REACTIONS (6)
  - BURNING SENSATION [None]
  - CANDIDIASIS [None]
  - ENTEROCOCCAL INFECTION [None]
  - GARDNERELLA INFECTION [None]
  - HERPES SIMPLEX [None]
  - PAIN [None]
